FAERS Safety Report 4918235-8 (Version None)
Quarter: 2006Q1

REPORT INFORMATION
  Report Type: 
  Country: None (occurrence: None)
  Receive Date: 20060215
  Receipt Date: 20060201
  Transmission Date: 20060701
  Serious: Yes (Hospitalization)
  Sender: FDA-Public Use
  Company Number: 02100-JPN-06-0002

PATIENT
  Age: 74 Year
  Sex: Male

DRUGS (12)
  1. CILOSTAZOL [Suspect]
     Indication: CEREBRAL INFARCTION
     Dosage: 200 MG
     Route: 048
     Dates: start: 20041221, end: 20051114
  2. LANSOPRAZOLE [Suspect]
     Indication: REFLUX OESOPHAGITIS
     Dosage: 30 MG
     Route: 048
     Dates: start: 20051030, end: 20051114
  3. AMANTADINE HCL [Concomitant]
  4. VOGLIBOSE [Concomitant]
  5. TRAZODONE HCL [Concomitant]
  6. TERAZOSIN HYDROCHLORIDE [Concomitant]
  7. ENALAPRIL MALEATE [Concomitant]
  8. TAMSULOSIN HCL [Concomitant]
  9. CHLORMADINONE ACEATE [Concomitant]
  10. FERROUS SULFATE TAB [Concomitant]
  11. FURSULTIAMINE [Concomitant]
  12. ... [Concomitant]

REACTIONS (12)
  - BLOOD PRESSURE DECREASED [None]
  - BLOOD UREA INCREASED [None]
  - DEPRESSED LEVEL OF CONSCIOUSNESS [None]
  - EROSIVE OESOPHAGITIS [None]
  - HAEMATEMESIS [None]
  - HAEMOGLOBIN DECREASED [None]
  - HEART RATE INCREASED [None]
  - MELAENA [None]
  - PALLOR [None]
  - REFLUX OESOPHAGITIS [None]
  - SHOCK HAEMORRHAGIC [None]
  - UPPER GASTROINTESTINAL HAEMORRHAGE [None]
